FAERS Safety Report 7281392-5 (Version None)
Quarter: 2011Q1

REPORT INFORMATION
  Report Type: 
  Country: None (occurrence: None)
  Receive Date: 20110208
  Receipt Date: 20110128
  Transmission Date: 20110831
  Serious: Yes (Death, Hospitalization)
  Sender: FDA-Public Use
  Company Number: PH-BAXTER-2011BH002660

PATIENT
  Sex: Male

DRUGS (1)
  1. DIANEAL [Suspect]
     Indication: PERITONEAL DIALYSIS
     Route: 033
     Dates: start: 20101022, end: 20110127

REACTIONS (4)
  - RENAL FAILURE CHRONIC [None]
  - AZOTAEMIA [None]
  - CARDIO-RESPIRATORY ARREST [None]
  - ULTRAFILTRATION FAILURE [None]
